FAERS Safety Report 4303007-8 (Version None)
Quarter: 2004Q1

REPORT INFORMATION
  Report Type: 
  Country: None (occurrence: None)
  Receive Date: 20040224
  Receipt Date: 20040213
  Transmission Date: 20041129
  Serious: Yes (Hospitalization)
  Sender: FDA-Public Use
  Company Number: FR-GLAXOSMITHKLINE-B0323702A

PATIENT
  Age: 63 Year
  Sex: Female

DRUGS (11)
  1. DEROXAT [Suspect]
     Indication: MENTAL DISORDER
     Dosage: 20MG PER DAY
     Route: 048
     Dates: start: 20030228, end: 20030326
  2. MEDIATOR [Concomitant]
     Dosage: 150MG TWICE PER DAY
     Route: 048
  3. LORAZEPAM [Concomitant]
     Dosage: 2.5MG TWICE PER DAY
     Route: 048
  4. TRIATEC [Concomitant]
     Dosage: 15MG PER DAY
     Route: 048
  5. SOLIAN [Concomitant]
     Dosage: 100MG PER DAY
     Route: 048
  6. AMAREL [Concomitant]
     Dosage: 2MG PER DAY
     Route: 048
  7. ASPIRIN [Concomitant]
     Dosage: 75MG PER DAY
     Route: 048
  8. TAHOR [Concomitant]
     Dosage: 10MG PER DAY
     Route: 048
  9. GLUCOPHAGE [Concomitant]
     Dosage: 1G THREE TIMES PER DAY
     Route: 048
  10. NUCTALON [Concomitant]
     Dosage: 1MG PER DAY
     Route: 048
  11. INSULIN [Concomitant]
     Dosage: 14IU PER DAY
     Route: 058
     Dates: start: 20030306

REACTIONS (17)
  - AGITATION [None]
  - ASPARTATE AMINOTRANSFERASE INCREASED [None]
  - BLOOD LACTATE DEHYDROGENASE INCREASED [None]
  - BLOOD SODIUM INCREASED [None]
  - CONFUSIONAL STATE [None]
  - DEHYDRATION [None]
  - DELIRIUM [None]
  - EXTRAPYRAMIDAL DISORDER [None]
  - GENERAL PHYSICAL HEALTH DETERIORATION [None]
  - HALLUCINATION [None]
  - HYPERTENSION [None]
  - HYPERTHERMIA [None]
  - MENTAL DISORDER [None]
  - MYDRIASIS [None]
  - MYOCLONUS [None]
  - RHABDOMYOLYSIS [None]
  - SEROTONIN SYNDROME [None]
